FAERS Safety Report 7998350-5 (Version None)
Quarter: 2011Q4

REPORT INFORMATION
  Report Type: 
  Country: None (occurrence: None)
  Receive Date: 20111221
  Receipt Date: 20110805
  Transmission Date: 20120403
  Serious: No
  Sender: FDA-Public Use
  Company Number: US-GLAXOSMITHKLINE-A0939926A

PATIENT
  Age: 75 Year
  Sex: Female

DRUGS (18)
  1. GREEN TEA [Concomitant]
  2. ZINC MAGNESIUM [Concomitant]
  3. LUTEIN [Concomitant]
  4. FLAX SEED [Concomitant]
  5. OAT BRAN [Concomitant]
  6. VITAMIN B COMPLEX CAP [Concomitant]
  7. GINGER [Concomitant]
  8. CHROMIUM CHLORIDE [Concomitant]
  9. PINE BARK [Concomitant]
  10. COQ10 [Concomitant]
  11. HEMP AGRIMONY [Concomitant]
  12. GINGKO [Concomitant]
  13. LENIUM [Concomitant]
  14. LOVAZA [Suspect]
     Indication: BLOOD TRIGLYCERIDES INCREASED
     Dosage: 2CAP TWICE PER DAY
     Route: 048
     Dates: start: 20101101
  15. CINNAMON [Concomitant]
  16. COD LIVER OIL [Concomitant]
  17. YEAST [Concomitant]
  18. VITAMIN D [Concomitant]

REACTIONS (4)
  - INCORRECT STORAGE OF DRUG [None]
  - UPPER-AIRWAY COUGH SYNDROME [None]
  - EPISTAXIS [None]
  - BLOOD TRIGLYCERIDES INCREASED [None]
